FAERS Safety Report 24130747 (Version 2)
Quarter: 2024Q3

REPORT INFORMATION
  Report Type: Report from Study
  Country: CA (occurrence: CA)
  Receive Date: 20240724
  Receipt Date: 20240812
  Transmission Date: 20241017
  Serious: Yes (Hospitalization)
  Sender: ABBVIE
  Company Number: CA-JNJFOC-20240754723

PATIENT
  Age: 77 Year
  Sex: Male

DRUGS (1)
  1. IMBRUVICA [Suspect]
     Active Substance: IBRUTINIB
     Indication: Waldenstrom^s macroglobulinaemia
     Dosage: 140 X 3
     Route: 048

REACTIONS (5)
  - Cerebral haemorrhage [Unknown]
  - Hip fracture [Unknown]
  - Fall [Unknown]
  - Cerebrovascular accident [Unknown]
  - Gait inability [Unknown]

NARRATIVE: CASE EVENT DATE: 20240710
